FAERS Safety Report 15474534 (Version 1)
Quarter: 2018Q4

REPORT INFORMATION
  Report Type: Spontaneous
  Country: IT (occurrence: IT)
  Receive Date: 20181008
  Receipt Date: 20181008
  Transmission Date: 20190205
  Serious: Yes (Other)
  Sender: FDA-Public Use
  Company Number: IT-TEVA-2018-IT-961601

PATIENT
  Age: 72 Year
  Sex: Male

DRUGS (3)
  1. CAMPTO [Suspect]
     Active Substance: IRINOTECAN
     Dosage: 315 MILLIGRAM DAILY;
     Route: 065
     Dates: start: 20070226
  2. 5-FU [Suspect]
     Active Substance: FLUOROURACIL
     Dosage: 680 MILLIGRAM DAILY;
     Route: 040
     Dates: start: 20070226, end: 20070226
  3. AVASTIN [Suspect]
     Active Substance: BEVACIZUMAB
     Dosage: 335 MILLIGRAM DAILY;
     Route: 042
     Dates: start: 20070226, end: 20070226

REACTIONS (4)
  - Platelet count decreased [Recovered/Resolved]
  - Haemolysis [Recovered/Resolved]
  - Liver function test abnormal [Recovered/Resolved]
  - Leukopenia [Unknown]

NARRATIVE: CASE EVENT DATE: 20070312
